FAERS Safety Report 23138591 (Version 2)
Quarter: 2023Q4

REPORT INFORMATION
  Report Type: Spontaneous
  Country: US (occurrence: None)
  Receive Date: 20231102
  Receipt Date: 20231219
  Transmission Date: 20240110
  Serious: Yes (Other)
  Sender: FDA-Public Use
  Company Number: 2023A244344

PATIENT
  Age: 20678 Day
  Sex: Female
  Weight: 65.3 kg

DRUGS (2)
  1. IMFINZI [Suspect]
     Active Substance: DURVALUMAB
     Indication: Lung carcinoma cell type unspecified stage III
     Route: 041
     Dates: start: 20230328
  2. IMFINZI [Concomitant]
     Active Substance: DURVALUMAB
     Indication: Lung carcinoma cell type unspecified stage III
     Route: 042
     Dates: start: 20230328

REACTIONS (2)
  - Thyroid disorder [Not Recovered/Not Resolved]
  - Hunger [Not Recovered/Not Resolved]

NARRATIVE: CASE EVENT DATE: 20230522
